FAERS Safety Report 5913977-X (Version None)
Quarter: 2008Q4

REPORT INFORMATION
  Report Type: 
  Country: None (occurrence: None)
  Receive Date: 20081009
  Receipt Date: 20080930
  Transmission Date: 20090506
  Serious: Yes (Hospitalization)
  Sender: FDA-Public Use
  Company Number: FR-AVENTIS-200813474FR

PATIENT
  Age: 57 Year
  Sex: Female

DRUGS (6)
  1. ARAVA [Suspect]
     Indication: RHEUMATOID ARTHRITIS
     Route: 048
     Dates: start: 20000901, end: 20010701
  2. ARAVA [Suspect]
     Route: 048
     Dates: start: 20070501
  3. ENBREL [Suspect]
     Indication: RHEUMATOID ARTHRITIS
     Route: 058
     Dates: start: 20010701, end: 20070201
  4. PREDNISONE TAB [Suspect]
     Indication: RHEUMATOID ARTHRITIS
     Route: 048
  5. NEORAL [Suspect]
     Indication: RHEUMATOID ARTHRITIS
     Route: 048
     Dates: start: 20000501, end: 20010901
  6. NOVATREX                           /00113801/ [Concomitant]
     Indication: RHEUMATOID ARTHRITIS
     Route: 048

REACTIONS (1)
  - NEUROENDOCRINE CARCINOMA OF THE SKIN [None]
